FAERS Safety Report 16063189 (Version 2)
Quarter: 2019Q3

REPORT INFORMATION
  Report Type: Spontaneous
  Country: US (occurrence: US)
  Receive Date: 20190312
  Receipt Date: 20190927
  Transmission Date: 20191004
  Serious: No
  Sender: FDA-Public Use
  Company Number: US-SA-2019SA066489

PATIENT
  Age: 62 Year
  Sex: Male

DRUGS (8)
  1. KEVZARA [Suspect]
     Active Substance: SARILUMAB
     Dosage: 200 MG, QOW
     Route: 058
     Dates: start: 20190128, end: 2019
  2. HYDROXYCHLOROQUINE [HYDROXYCHLOROQUINE SULFATE] [Concomitant]
     Active Substance: HYDROXYCHLOROQUINE SULFATE
  3. LISINOPRIL. [Concomitant]
     Active Substance: LISINOPRIL
  4. FOLIC ACID. [Concomitant]
     Active Substance: FOLIC ACID
  5. METHOTREXATE. [Concomitant]
     Active Substance: METHOTREXATE
  6. METFORMIN HCL [Concomitant]
     Active Substance: METFORMIN HYDROCHLORIDE
  7. ATORVASTATIN [Concomitant]
     Active Substance: ATORVASTATIN
  8. VICODIN [Concomitant]
     Active Substance: ACETAMINOPHEN\HYDROCODONE BITARTRATE

REACTIONS (1)
  - Back disorder [Not Recovered/Not Resolved]

NARRATIVE: CASE EVENT DATE: 2019
